FAERS Safety Report 7644561-8 (Version None)
Quarter: 2011Q3

REPORT INFORMATION
  Report Type: 
  Country: None (occurrence: None)
  Receive Date: 20110729
  Receipt Date: 20110725
  Transmission Date: 20111222
  Serious: Yes (Other)
  Sender: FDA-Public Use
  Company Number: FR-PFIZER INC-2011167912

PATIENT
  Age: 51 Year
  Sex: Female

DRUGS (4)
  1. LYRICA [Suspect]
     Dosage: 50 MG, 2X/DAY
     Route: 048
     Dates: start: 20110218, end: 20110319
  2. PAROXETINE HCL [Concomitant]
     Dosage: UNK
  3. MYOLASTAN [Suspect]
     Dosage: 50 MG, 1X/DAY
     Route: 048
     Dates: start: 20110210, end: 20110319
  4. VALACYCLOVIR HYDROCHLORIDE [Concomitant]
     Dosage: UNK

REACTIONS (1)
  - CYTOLYTIC HEPATITIS [None]
